FAERS Safety Report 9651844 (Version 2)
Quarter: 2014Q1

REPORT INFORMATION
  Report Type: Spontaneous
  Country: US (occurrence: US)
  Receive Date: 20131029
  Receipt Date: 20140115
  Transmission Date: 20141002
  Serious: Yes (Other)
  Sender: FDA-Public Use
  Company Number: US-NOVOPROD-390469

PATIENT
  Age: 43 Year
  Sex: Female
  Weight: 123.81 kg

DRUGS (4)
  1. VICTOZA [Suspect]
     Indication: TYPE 2 DIABETES MELLITUS
     Dosage: 0.6 MG, QD
     Route: 058
     Dates: start: 20130510, end: 201307
  2. VICTOZA [Suspect]
     Dosage: 1.2 MG, QD
     Route: 058
     Dates: start: 201307, end: 201307
  3. VICTOZA [Suspect]
     Dosage: UNKNOWN
     Route: 058
  4. COUMADIN                           /00014802/ [Concomitant]
     Indication: CONGESTIVE CARDIOMYOPATHY
     Dosage: UNKNOWN
     Route: 048

REACTIONS (2)
  - Transient ischaemic attack [Recovered/Resolved]
  - Anticoagulation drug level below therapeutic [Unknown]
